FAERS Safety Report 6379824-X (Version None)
Quarter: 2009Q3

REPORT INFORMATION
  Report Type: 
  Country: None (occurrence: None)
  Receive Date: 20090924
  Receipt Date: 20090507
  Transmission Date: 20100115
  Serious: Yes (Other)
  Sender: FDA-Public Use
  Company Number: US-CVT-090025

PATIENT
  Age: 66 Year
  Sex: Male
  Weight: 107 kg

DRUGS (13)
  1. RANEXA [Suspect]
     Indication: ANGINA PECTORIS
     Dosage: 500 MG, BID, ORAL
     Route: 048
     Dates: start: 20080227, end: 20090101
  2. CARVEDILOL [Suspect]
     Indication: EJECTION FRACTION DECREASED
  3. IMDUR [Concomitant]
  4. QUINAPRIL [Concomitant]
  5. ASPIRIN [Concomitant]
  6. PACERONE [Concomitant]
  7. ALLOPURINOL [Concomitant]
  8. CRESTOR [Concomitant]
  9. PLAVIX(CLOPIDORGREL SULFATE) [Concomitant]
  10. METFORMIN [Concomitant]
  11. FLOMAX (MORNIFLUMATE) [Concomitant]
  12. NITROGLYCERIN [Concomitant]
  13. WELLBUTRIN [Concomitant]

REACTIONS (5)
  - ANGINA PECTORIS [None]
  - ANGINA UNSTABLE [None]
  - DRUG INTERACTION [None]
  - DYSGEUSIA [None]
  - WRONG TECHNIQUE IN DRUG USAGE PROCESS [None]
